FAERS Safety Report 7198486-5 (Version None)
Quarter: 2010Q4

REPORT INFORMATION
  Report Type: 
  Country: None (occurrence: None)
  Receive Date: 20101214
  Receipt Date: 20101207
  Transmission Date: 20110411
  Serious: Yes (Death)
  Sender: FDA-Public Use
  Company Number: 201011AGG00963

PATIENT
  Age: 82 Year
  Sex: Male

DRUGS (5)
  1. TIROFIBRAN HYDROCHLORIDE (AGGRASTAT TIROFIBAN HYDROCHLORIDE) [Suspect]
     Indication: PERCUTANEOUS CORONARY INTERVENTION
     Dosage: (DAILY DOSE: AS 60KG DOSAGE INTRAVENOUS (NOT OTHERWISE SPECIFIED))
     Route: 042
  2. TIROFIBRAN HYDROCHLORIDE (AGGRASTAT TIROFIBAN HYDROCHLORIDE) [Suspect]
     Indication: THROMBOSIS
     Dosage: (DAILY DOSE: AS 60KG DOSAGE INTRAVENOUS (NOT OTHERWISE SPECIFIED))
     Route: 042
  3. HEPARIN [Concomitant]
  4. ACETYLSALICYLIC ACID [Concomitant]
  5. CLOPIDOGREL [Concomitant]

REACTIONS (5)
  - GASTROINTESTINAL HAEMORRHAGE [None]
  - RESUSCITATION [None]
  - THROMBOCYTOPENIA [None]
  - TRACHEAL HAEMORRHAGE [None]
  - URINARY BLADDER HAEMORRHAGE [None]
